FAERS Safety Report 16872437 (Version 15)
Quarter: 2020Q2

REPORT INFORMATION
  Report Type: Report from Study
  Country: FR (occurrence: FR)
  Receive Date: 20191001
  Receipt Date: 20200501
  Transmission Date: 20200713
  Serious: Yes (Hospitalization)
  Sender: FDA-Public Use
  Company Number: FR-ROCHE-2419499

PATIENT
  Age: 30 Year
  Sex: Female
  Weight: 98 kg

DRUGS (22)
  1. METHYLPREDNISOLONE. [Suspect]
     Active Substance: METHYLPREDNISOLONE
     Indication: RELAPSING-REMITTING MULTIPLE SCLEROSIS
     Dosage: MOST RECENT DOSE OF METHYLPREDNISOLONE: 100 MG?ONCE BEFORE INFUSION
     Route: 042
     Dates: start: 20171219
  2. METHYLPREDNISOLONE. [Suspect]
     Active Substance: METHYLPREDNISOLONE
     Route: 042
     Dates: start: 20180605
  3. ATARAX [Concomitant]
     Active Substance: HYDROXYZINE HYDROCHLORIDE
     Dosage: ONCE BEFORE INFUSION
     Route: 048
     Dates: start: 20190503
  4. ETHINYLESTRADIOL;LEVONORGESTREL [Concomitant]
     Active Substance: ETHINYL ESTRADIOL\LEVONORGESTREL
     Dosage: CONTRACEPTIVE
     Route: 048
     Dates: start: 20170101
  5. PARACETAMOL [Concomitant]
     Active Substance: ACETAMINOPHEN
     Dosage: ONCE BEFORE INFUSION
     Route: 048
     Dates: start: 20180605
  6. OCRELIZUMAB. [Suspect]
     Active Substance: OCRELIZUMAB
     Indication: RELAPSING-REMITTING MULTIPLE SCLEROSIS
     Dosage: MOST RECENT DOSE OF 600 MG WAS ADMINISTERED ON 03/MAY/2019?TWO 300 MG INFUSIONS ON DAY 1 AND 15, FOL
     Route: 042
     Dates: start: 20171219
  7. METHYLPREDNISOLONE. [Suspect]
     Active Substance: METHYLPREDNISOLONE
     Route: 042
     Dates: start: 20180103
  8. PARACETAMOL [Concomitant]
     Active Substance: ACETAMINOPHEN
     Dosage: ONCE BEFORE INFUSION
     Route: 048
     Dates: start: 20180103
  9. DOLIPRANE [Concomitant]
     Active Substance: ACETAMINOPHEN
     Route: 048
  10. PHYTOXIL [Concomitant]
     Indication: OROPHARYNGEAL PAIN
     Route: 048
  11. METHYLPREDNISOLONE. [Suspect]
     Active Substance: METHYLPREDNISOLONE
     Route: 042
     Dates: start: 20181120
  12. ATARAX [Concomitant]
     Active Substance: HYDROXYZINE HYDROCHLORIDE
     Indication: PREMEDICATION
     Dosage: ONCE BEFORE INFUSION
     Route: 048
     Dates: start: 20171219
  13. ATARAX [Concomitant]
     Active Substance: HYDROXYZINE HYDROCHLORIDE
     Dosage: ONCE BEFORE INFUSION
     Route: 048
     Dates: start: 20181120
  14. ATARAX [Concomitant]
     Active Substance: HYDROXYZINE HYDROCHLORIDE
     Dosage: ONCE BEFORE INFUSION
     Route: 048
     Dates: start: 20180605
  15. NASONEX [Concomitant]
     Active Substance: MOMETASONE FUROATE
     Indication: OTITIS MEDIA
     Dosage: 2 PUFFS
     Route: 045
     Dates: start: 20190312
  16. PARACETAMOL [Concomitant]
     Active Substance: ACETAMINOPHEN
     Dosage: ONCE BEFORE INFUSION
     Route: 048
     Dates: start: 20190503
  17. METHYLPREDNISOLONE. [Suspect]
     Active Substance: METHYLPREDNISOLONE
     Route: 042
     Dates: start: 20190503
  18. PARACETAMOL [Concomitant]
     Active Substance: ACETAMINOPHEN
     Indication: PREMEDICATION
     Dosage: ONCE BEFORE INFUSION
     Route: 048
     Dates: start: 20171219
  19. AMOXICILLINE [AMOXICILLIN] [Concomitant]
     Active Substance: AMOXICILLIN
     Indication: OROPHARYNGEAL PAIN
     Route: 048
     Dates: start: 20180219
  20. ATARAX [Concomitant]
     Active Substance: HYDROXYZINE HYDROCHLORIDE
     Dosage: ONCE BEFORE INFUSION
     Route: 048
     Dates: start: 20180130
  21. EFFERALGAN [Concomitant]
     Active Substance: ACETAMINOPHEN
     Indication: RHINITIS
     Route: 048
  22. PARACETAMOL [Concomitant]
     Active Substance: ACETAMINOPHEN
     Dosage: ONCE BEFORE INFUSION
     Route: 048
     Dates: start: 20181120

REACTIONS (1)
  - Capillary permeability increased [Not Recovered/Not Resolved]

NARRATIVE: CASE EVENT DATE: 201907
